FAERS Safety Report 4824887-3 (Version None)
Quarter: 2005Q4

REPORT INFORMATION
  Report Type: 
  Country: None (occurrence: None)
  Receive Date: 20051110
  Receipt Date: 20051019
  Transmission Date: 20060501
  Serious: Yes (Hospitalization, Disabling)
  Sender: FDA-Public Use
  Company Number: UA-GLAXOSMITHKLINE-B0373740B

PATIENT
  Age: 71 Year
  Sex: Female

DRUGS (3)
  1. ROSIGLITAZONE [Suspect]
     Route: 048
     Dates: start: 20030207
  2. AMARYL [Concomitant]
     Route: 048
     Dates: start: 20020901
  3. GLUCOPHAGE [Concomitant]
     Route: 048
     Dates: start: 20040909

REACTIONS (4)
  - ANGINA UNSTABLE [None]
  - CARDIAC FAILURE [None]
  - RETINAL HAEMORRHAGE [None]
  - VITREOUS HAEMORRHAGE [None]
